FAERS Safety Report 6634124-5 (Version None)
Quarter: 2010Q1

REPORT INFORMATION
  Report Type: 
  Country: None (occurrence: None)
  Receive Date: 20100225
  Receipt Date: 20091020
  Transmission Date: 20100710
  Serious: Yes (Life-Threatening)
  Sender: FDA-Public Use
  Company Number: AUR-APL-2009-01055 (0)

PATIENT
  Age: 47 Year
  Sex: Male

DRUGS (3)
  1. LAMOTRIGINE [Suspect]
     Dosage: 25 TABS, ONCE
  2. PRISTIQ [Suspect]
     Indication: DEPRESSION
     Dosage: 50MG, QAM, ORAL
     Route: 048
     Dates: start: 20090306, end: 20090323
  3. KLONOPIN [Concomitant]

REACTIONS (5)
  - DYSARTHRIA [None]
  - MENTAL STATUS CHANGES [None]
  - SUICIDE ATTEMPT [None]
  - TREMOR [None]
  - VOMITING [None]
